FAERS Safety Report 5304737-1 (Version None)
Quarter: 2007Q2

REPORT INFORMATION
  Report Type: 
  Country: None (occurrence: None)
  Receive Date: 20070423
  Receipt Date: 20070419
  Transmission Date: 20071010
  Serious: Yes (Congenital Anomaly)
  Sender: FDA-Public Use
  Company Number: AUWYE498720APR07

PATIENT
  Sex: Female

DRUGS (4)
  1. EFFEXOR XR [Suspect]
     Indication: DEPRESSION
     Dosage: 150 MG DAILY
     Route: 064
  2. OLANZAPINE [Suspect]
     Indication: DEPRESSION
     Dosage: 5 MG DAILY
     Route: 064
  3. LAMOTRIGINE [Suspect]
     Indication: DEPRESSION
     Dosage: 200 MG DAILY
     Route: 064
  4. LITHIUM CARBONATE [Suspect]
     Indication: DEPRESSION
     Dosage: 900 MG DAILY
     Route: 064

REACTIONS (2)
  - CLEFT PALATE [None]
  - DRUG EXPOSURE DURING PREGNANCY [None]
